FAERS Safety Report 12264037 (Version 2)
Quarter: 2016Q2

REPORT INFORMATION
  Report Type: Spontaneous
  Country: US (occurrence: US)
  Receive Date: 20160413
  Receipt Date: 20160517
  Transmission Date: 20160815
  Serious: Yes (Death)
  Sender: FDA-Public Use
  Company Number: US-JNJFOC-20160320150

PATIENT
  Age: 69 Year
  Sex: Female

DRUGS (5)
  1. MULTIVITAMINS [Concomitant]
     Active Substance: VITAMINS
     Dosage: 1 CAP QD
  2. IMBRUVICA [Suspect]
     Active Substance: IBRUTINIB
     Indication: CHRONIC LYMPHOCYTIC LEUKAEMIA
     Route: 048
     Dates: start: 20140505, end: 20150303
  3. ASPIRIN. [Concomitant]
     Active Substance: ASPIRIN
     Dosage: 81 MG, QD
  4. LOTREL [Concomitant]
     Active Substance: AMLODIPINE BESYLATE\BENAZEPRIL HYDROCHLORIDE
     Dosage: 10-20MG, QD
  5. FISH OIL [Concomitant]
     Active Substance: FISH OIL
     Dosage: 1 TABLET, DAILY

REACTIONS (1)
  - Disease progression [Fatal]

NARRATIVE: CASE EVENT DATE: 20150220
